FAERS Safety Report 4291501-8 (Version None)
Quarter: 2004Q1

REPORT INFORMATION
  Report Type: 
  Country: None (occurrence: None)
  Receive Date: 20040211
  Receipt Date: 20030804
  Transmission Date: 20041129
  Serious: Yes (Other)
  Sender: FDA-Public Use
  Company Number: US-BRISTOL-MYERS SQUIBB COMPANY-12346615

PATIENT
  Age: 10 Year
  Sex: Female
  Weight: 50 kg

DRUGS (4)
  1. CEFZIL [Suspect]
     Indication: PYREXIA
     Dosage: 1 3/4 TEASPOON TWICE DAILY
     Route: 048
     Dates: start: 20030724, end: 20030801
  2. CEFZIL [Suspect]
     Indication: TONSILLAR HYPERTROPHY
     Dosage: 1 3/4 TEASPOON TWICE DAILY
     Route: 048
     Dates: start: 20030724, end: 20030801
  3. CLARITIN [Concomitant]
  4. MULTIVITAMIN [Concomitant]

REACTIONS (4)
  - HEADACHE [None]
  - PYREXIA [None]
  - RASH [None]
  - URTICARIA [None]
